FAERS Safety Report 5796015-1 (Version None)
Quarter: 2008Q3

REPORT INFORMATION
  Report Type: 
  Country: None (occurrence: None)
  Receive Date: 20080701
  Receipt Date: 20080617
  Transmission Date: 20090109
  Serious: Yes (Hospitalization)
  Sender: FDA-Public Use
  Company Number: GB-ROCHE-570211

PATIENT
  Sex: Female
  Weight: 72.5 kg

DRUGS (8)
  1. CAPECITABINE [Suspect]
     Indication: COLON CANCER
     Route: 048
     Dates: start: 20080228
  2. OMEPRAZOLE [Concomitant]
     Route: 048
  3. METOCLOPRAMIDE [Concomitant]
     Route: 048
  4. DEXTROSE [Concomitant]
     Route: 042
     Dates: start: 20080609
  5. CYCLIZINE [Concomitant]
     Route: 042
     Dates: start: 20080610
  6. CEFTRIAXONE [Concomitant]
     Route: 042
     Dates: start: 20080610
  7. SODIUM CHLORIDE [Concomitant]
     Dosage: SALINE 20 MMOL
     Dates: start: 20080609
  8. SODIUM CHLORIDE [Concomitant]
     Dosage: SALINE 40 MMOL.
     Dates: start: 20080610

REACTIONS (2)
  - DIARRHOEA [None]
  - NERVOUS SYSTEM DISORDER [None]
